FAERS Safety Report 6222671-X (Version None)
Quarter: 2009Q2

REPORT INFORMATION
  Report Type: 
  Country: None (occurrence: None)
  Receive Date: 20090611
  Receipt Date: 20090528
  Transmission Date: 20091009
  Serious: Yes (Other)
  Sender: FDA-Public Use
  Company Number: US-ELI_LILLY_AND_COMPANY-US200803003488

PATIENT
  Sex: Female
  Weight: 62.585 kg

DRUGS (2)
  1. ZYPREXA [Suspect]
     Dosage: 5 MG, UNK
     Dates: start: 19960101, end: 20040101
  2. ZYPREXA [Suspect]
     Dosage: 5 MG, UNK
     Dates: start: 20070101

REACTIONS (3)
  - DIABETES MELLITUS [None]
  - HYPERGLYCAEMIA [None]
  - NEOPLASM [None]
